FAERS Safety Report 23226530 (Version 1)
Quarter: 2023Q4

REPORT INFORMATION
  Report Type: Spontaneous
  Country: CN (occurrence: CN)
  Receive Date: 20231124
  Receipt Date: 20231124
  Transmission Date: 20240109
  Serious: Yes (Other)
  Sender: FDA-Public Use
  Company Number: None

PATIENT
  Age: 75 Year
  Sex: Male
  Weight: 145 kg

DRUGS (2)
  1. MANNITOL [Suspect]
     Active Substance: MANNITOL
     Indication: Reduction of increased intracranial pressure
     Dosage: 40 G THREE TIMES DAILY (DOSAGE FORM: INJECTION)
     Route: 041
     Dates: start: 20231107, end: 20231108
  2. MANNITOL [Suspect]
     Active Substance: MANNITOL
     Dosage: 20 G THREE TIMES DAILY (DOSAGE FORM: INJECTION)
     Route: 041
     Dates: start: 20231109, end: 20231117

REACTIONS (3)
  - Renal injury [Recovering/Resolving]
  - Blood urea increased [Unknown]
  - Blood creatinine increased [Recovering/Resolving]

NARRATIVE: CASE EVENT DATE: 20231109
